FAERS Safety Report 7669592-3 (Version None)
Quarter: 2011Q3

REPORT INFORMATION
  Report Type: 
  Country: None (occurrence: None)
  Receive Date: 20110808
  Receipt Date: 20110729
  Transmission Date: 20111222
  Serious: Yes (Other)
  Sender: FDA-Public Use
  Company Number: US-BAYER-201040712NA

PATIENT
  Age: 62 Year
  Sex: Female
  Weight: 59 kg

DRUGS (24)
  1. METOPROLOL TARTRATE [Concomitant]
     Indication: HYPERTENSION
     Dosage: UNK
     Route: 048
     Dates: start: 20060101
  2. QUINAPRIL HYDROCHLORIDE [Concomitant]
     Dosage: 10 MG, QD
     Dates: start: 20060427
  3. LEVAQUIN [Concomitant]
  4. VANCOMYCIN [Concomitant]
     Dosage: 1 G, UNK
     Route: 042
     Dates: start: 20060501
  5. LISINOPRIL AND HYDROCHLOROTHIAZIDE [Concomitant]
     Dosage: 20/12.5MG
     Route: 048
     Dates: start: 20040101
  6. TRASYLOL [Suspect]
     Indication: CORONARY ARTERY BYPASS
     Dosage: UNK 200CC TWICE
     Route: 042
     Dates: start: 20060501, end: 20060501
  7. INSULIN [Concomitant]
  8. BLOOD AND RELATED PRODUCTS [Concomitant]
     Dosage: 1 U, UNK
     Route: 042
  9. CONTRAST MEDIA [Concomitant]
  10. VANCOMYCIN [Concomitant]
     Dosage: 1 G, UNK
     Route: 042
     Dates: start: 20060430, end: 20060430
  11. HEPARIN [Concomitant]
     Dosage: UNK
     Dates: start: 20060501
  12. HYDROCHLOROTHIAZIDE [Concomitant]
     Indication: HYPERTENSION
     Dosage: UNK
     Route: 048
     Dates: start: 20060101
  13. VERAPAMIL SLOW RELEASE [Concomitant]
     Dosage: 180 MG, QD
     Dates: start: 20060427
  14. ACETAMINOPHEN [Concomitant]
     Indication: PAIN PROPHYLAXIS
     Dosage: 325 MG OR 650 MG EVERY 4 HOURS AS NEEDED
     Route: 048
     Dates: start: 20060427
  15. AMIODARONE HCL [Concomitant]
     Dosage: 400 MG, BID
     Route: 048
     Dates: start: 20060428
  16. VALIUM [Concomitant]
     Indication: ANXIETY
     Dosage: 5MG 3 TIMES PER DAY AS NEEDED
     Route: 048
     Dates: start: 20060427
  17. CONTRAST MEDIA [Concomitant]
     Indication: CARDIAC VENTRICULOGRAM
  18. CONTRAST MEDIA [Concomitant]
  19. FENTANYL [Concomitant]
     Dosage: UNK
  20. CONTRAST MEDIA [Concomitant]
     Indication: CATHETERISATION CARDIAC
     Dosage: UNK
     Dates: start: 20060428
  21. TRASYLOL [Suspect]
     Indication: AORTIC VALVE REPLACEMENT
  22. LEVOPHED [Concomitant]
     Dosage: 8 MG, UNK
     Route: 042
     Dates: start: 20060501
  23. FELODIPINE [Concomitant]
     Dosage: 10 MG CR
     Route: 048
     Dates: start: 20060421
  24. CONTRAST MEDIA [Concomitant]
     Indication: ANGIOGRAM

REACTIONS (14)
  - DISABILITY [None]
  - EMOTIONAL DISTRESS [None]
  - INJURY [None]
  - LUNG DISORDER [None]
  - RENAL IMPAIRMENT [None]
  - UNEVALUABLE EVENT [None]
  - FEAR [None]
  - RENAL FAILURE [None]
  - RENAL INJURY [None]
  - MYOCARDIAL INFARCTION [None]
  - STRESS [None]
  - MULTI-ORGAN FAILURE [None]
  - PAIN [None]
  - ANXIETY [None]
